FAERS Safety Report 8913040 (Version 6)
Quarter: 2013Q2

REPORT INFORMATION
  Report Type: Spontaneous
  Country: US (occurrence: None)
  Receive Date: 20121113
  Receipt Date: 20130424
  Transmission Date: 20140414
  Serious: Yes (Hospitalization, Other)
  Sender: FDA-Public Use
  Company Number: 2012-000216

PATIENT
  Age: 62 Year
  Sex: Female

DRUGS (16)
  1. ACTONEL [Suspect]
     Indication: OSTEOPOROSIS
     Dosage: DOSAGE / REGIMEN UNKNOWN, ORAL
     Route: 048
     Dates: start: 20030811, end: 200507
  2. FOSAMAX [Suspect]
     Indication: OSTEOPOROSIS
     Dosage: DOSAGE / REGIMEN UNKNOWN, UNKNOWN
     Route: 048
     Dates: start: 20050714, end: 20061026
  3. FOSAMAX [Suspect]
     Dosage: DOSAGE / REGIMEN UNKNOWN, UNKNOWN
     Route: 048
     Dates: start: 20050714, end: 20061026
  4. FOSAMAX PLUS D (ALENDRONATE SODIUM, COLECALCIFEROL) [Suspect]
     Indication: OSTEOPOROSIS
     Dosage: DOSAGE / REGIMEN UNKNOWN, ORAL
     Route: 048
     Dates: start: 20061026, end: 20090409
  5. ALENDRONATE (ALENDRONATE SODIUM) [Suspect]
     Route: 048
     Dates: start: 20090409, end: 20110124
  6. ESTRACE VAGINAL (ESTRADIOL) [Concomitant]
  7. EVISTA (RALOXIFENE HYDROCHLORIDE) [Concomitant]
  8. SYNTHROID (LEVOTHYROXINE SODIUM) [Concomitant]
  9. AMBIEN (ZOLPIDEM TARTRATE) [Concomitant]
  10. EFFEXOR XR (VENLAFAXINE HYDROCHLORIDE) (75 MILLIGRAM, CAPSULE) (VENLAFAXINE HYDROCHLORIDE) [Concomitant]
  11. PROZAC (FLUOXETINE HYDROCHLORIDE) [Concomitant]
  12. PROTONIX (PANTOPRAZOLE SODIUM SESQUIHYDRATE) CALCIUM (CALCIUM) [Concomitant]
  13. CALCIUM (CALCIUM) [Concomitant]
  14. VITAMIN D 100318501/ (COLECALCIFEROL) [Concomitant]
  15. ADVAIR (FLUTICASONE PROPIONATE, SALMETEROL XINAFOATE) [Concomitant]
  16. ALBUTEROL /00139501/(SALBUTAMOL) [Concomitant]

REACTIONS (14)
  - Femur fracture [None]
  - Pathological fracture [None]
  - Groin pain [None]
  - Stress fracture [None]
  - Low turnover osteopathy [None]
  - Bone disorder [None]
  - Pain [None]
  - Multiple fractures [None]
  - Impaired healing [None]
  - Fracture displacement [None]
  - Fracture nonunion [None]
  - Gastrooesophageal reflux disease [None]
  - Gastritis [None]
  - Gastric ulcer [None]
